FAERS Safety Report 11219882 (Version 2)
Quarter: 2019Q2

REPORT INFORMATION
  Report Type: Spontaneous
  Country: BR (occurrence: BR)
  Receive Date: 20150624
  Receipt Date: 20190621
  Transmission Date: 20190711
  Serious: Yes (Hospitalization)
  Sender: FDA-Public Use
  Company Number: BR-TORRENT-00002976

PATIENT
  Age: 9 Year
  Sex: Female
  Weight: 29 kg

DRUGS (4)
  1. AMATO [Concomitant]
     Active Substance: TOPIRAMATE
     Indication: SEIZURE
     Dosage: TWO TABLETS OF AMATO 50 MG THREE TIMES DAILY/ ORAL
     Route: 048
     Dates: start: 2011
  2. LAMITOR [Suspect]
     Active Substance: LAMOTRIGINE
     Indication: SEIZURE
     Dosage: LAMITOR 100 MG THREE TIMES DAILY/ ORAL
     Route: 048
     Dates: start: 2012
  3. FRISIUM [Concomitant]
     Active Substance: CLOBAZAM
     Indication: SEIZURE
     Dosage: THREE TIMES DAILY/ ORAL
     Route: 048
     Dates: start: 2011
  4. GARDENAL [Concomitant]
     Active Substance: PHENOBARBITAL
     Indication: SEIZURE
     Dosage: GARDENAL 40 MG 60 DROPS TWICE DAILY/ ORAL
     Route: 048
     Dates: start: 2011

REACTIONS (4)
  - Drug ineffective [Unknown]
  - Urinary tract infection [Recovered/Resolved]
  - Nasopharyngitis [Not Recovered/Not Resolved]
  - Pyrexia [Recovered/Resolved]

NARRATIVE: CASE EVENT DATE: 2012
